FAERS Safety Report 9798865 (Version 4)
Quarter: 2014Q1

REPORT INFORMATION
  Report Type: Spontaneous
  Country: IT (occurrence: None)
  Receive Date: 20131231
  Receipt Date: 20140224
  Transmission Date: 20141002
  Serious: Yes (Hospitalization)
  Sender: FDA-Public Use
  Company Number: AUR-APL-2013-10833

PATIENT
  Age: 84 Year
  Sex: Male

DRUGS (10)
  1. LEVOFLOXACIN [Suspect]
     Indication: PYREXIA
     Route: 048
     Dates: start: 20131125, end: 20131129
  2. STILNOX (ZOLPIDEM TARTRATE) [Concomitant]
  3. CLENIL (BECLOMETASONE DIPROPIONATE) [Concomitant]
  4. ATEM (IPRATROPIUM BROMIDE) [Concomitant]
  5. CEFTRIAXONE (CEFTRIAXONE) [Concomitant]
  6. FUROSEMIDE (FUROSEMIDE) [Concomitant]
  7. LANSOPRAZOLE (LANSOPRAZOLE) [Concomitant]
  8. CLOPIDOGREL (CLOPIDOGREL) [Concomitant]
  9. RAMIPRIL (RAMIPRIL) [Concomitant]
  10. ALPRAZOLAM (ALPRAZOLAM) [Concomitant]

REACTIONS (4)
  - Drug-induced liver injury [None]
  - Iatrogenic infection [None]
  - Blood creatinine increased [None]
  - Azotaemia [None]
